FAERS Safety Report 5062938-4 (Version None)
Quarter: 2006Q3

REPORT INFORMATION
  Report Type: 
  Country: None (occurrence: None)
  Receive Date: 20060724
  Receipt Date: 20060717
  Transmission Date: 20061208
  Serious: Yes (Other)
  Sender: FDA-Public Use
  Company Number: 2006-06-1946

PATIENT
  Age: 59 Year
  Sex: Male

DRUGS (3)
  1. NASONEX [Suspect]
     Indication: RHINITIS
     Dosage: 1 PUFF BID NASAL SPRAY
     Route: 045
     Dates: start: 20030101, end: 20060701
  2. ENTOCORT EC [Concomitant]
  3. FORMOTEROL AEROSOL SOLUTION [Concomitant]

REACTIONS (2)
  - AGEUSIA [None]
  - ANOSMIA [None]
